FAERS Safety Report 23866479 (Version 1)
Quarter: 2024Q2

REPORT INFORMATION
  Report Type: Spontaneous
  Country: CH (occurrence: CH)
  Receive Date: 20240517
  Receipt Date: 20240517
  Transmission Date: 20240716
  Serious: Yes (Other)
  Sender: FDA-Public Use
  Company Number: CH-ABBVIE-5762281

PATIENT

DRUGS (1)
  1. COMBIGAN [Suspect]
     Active Substance: BRIMONIDINE TARTRATE\TIMOLOL MALEATE
     Indication: Product used for unknown indication
     Route: 047

REACTIONS (25)
  - Respiratory failure [Unknown]
  - Nasal dryness [Unknown]
  - Hallucination [Unknown]
  - Obstructive airways disorder [Unknown]
  - Diarrhoea [Unknown]
  - Sleep disorder [Unknown]
  - Syncope [Unknown]
  - Dizziness [Unknown]
  - Blood glucose decreased [Unknown]
  - Asthenia [Unknown]
  - Nightmare [Unknown]
  - Nasopharyngitis [Unknown]
  - Dry mouth [Unknown]
  - Taste disorder [Unknown]
  - Anxiety [Unknown]
  - Somnolence [Unknown]
  - Hypertension [Unknown]
  - Nausea [Unknown]
  - Myalgia [Unknown]
  - Cardiac failure [Unknown]
  - Amnesia [Unknown]
  - Eating disorder [Unknown]
  - Headache [Unknown]
  - Decreased appetite [Unknown]
  - Heart rate irregular [Unknown]
